FAERS Safety Report 7794660-5 (Version None)
Quarter: 2011Q4

REPORT INFORMATION
  Report Type: 
  Country: None (occurrence: None)
  Receive Date: 20111004
  Receipt Date: 20110930
  Transmission Date: 20120403
  Serious: Yes (Hospitalization, Other)
  Sender: FDA-Public Use
  Company Number: GB-SHIRE-ALL1-2011-03685

PATIENT
  Age: 54 Year
  Sex: Male
  Weight: 89.9 kg

DRUGS (13)
  1. CITALOPRAM HYDROBROMIDE [Concomitant]
     Indication: PRODUCT USED FOR UNKNOWN INDICATION
     Dosage: 40 MG, UNK
     Route: 048
  2. MESALAMINE [Suspect]
     Indication: COLITIS ULCERATIVE
     Dosage: 800 MG, 3X/DAY:TID
     Route: 048
     Dates: start: 20070101, end: 20110527
  3. ISOSORBIDE MONONITRATE [Concomitant]
     Indication: PRODUCT USED FOR UNKNOWN INDICATION
     Dosage: 20 MG, 2X/DAY:BID
     Route: 048
  4. WARFARIN SODIUM [Concomitant]
     Indication: DEEP VEIN THROMBOSIS
     Dosage: UNK, UNKNOWN
     Route: 048
  5. ATENOLOL [Concomitant]
     Indication: PRODUCT USED FOR UNKNOWN INDICATION
     Dosage: 50 MG, 1X/DAY:QD
     Route: 048
  6. MESALAMINE [Suspect]
     Indication: COLITIS ULCERATIVE
     Dosage: 2 G, 1X/DAY:QD
     Route: 054
     Dates: start: 20070101, end: 20110527
  7. FERROUS FUMARATE [Concomitant]
     Indication: PRODUCT USED FOR UNKNOWN INDICATION
     Dosage: 210 MG, 3X/DAY:TID
     Route: 048
  8. MESALAMINE [Suspect]
     Dosage: 400 MG, 3X/DAY:TID
     Route: 048
     Dates: start: 20110101
  9. ACETAMINOPHEN AND CODEINE PHOSPHATE [Concomitant]
     Indication: PRODUCT USED FOR UNKNOWN INDICATION
     Dosage: 1 DF, 4X/DAY:QID
     Route: 048
  10. DESLORATADINE [Concomitant]
     Indication: RASH
     Dosage: 5 MG, 1X/DAY:QD
     Route: 048
  11. MESALAMINE [Suspect]
     Dosage: 2 G, 1X/DAY:QD
     Route: 054
     Dates: start: 20110101
  12. FEXOFENADINE [Concomitant]
     Indication: RASH
     Dosage: 180 MG, 2X/DAY:BID
     Route: 048
  13. SIMVASTATIN [Concomitant]
     Indication: PRODUCT USED FOR UNKNOWN INDICATION
     Dosage: 40 MG, 2X/DAY:BID
     Route: 048

REACTIONS (8)
  - CONTUSION [None]
  - NEUTROPENIA [None]
  - RASH [None]
  - ANAEMIA [None]
  - EOSINOPHILIA [None]
  - LEUKOPENIA [None]
  - THROMBOCYTOPENIA [None]
  - NEUTROPENIC SEPSIS [None]
